FAERS Safety Report 22284920 (Version 8)
Quarter: 2024Q4

REPORT INFORMATION
  Report Type: Spontaneous
  Country: US (occurrence: US)
  Receive Date: 20230504
  Receipt Date: 20241226
  Transmission Date: 20250115
  Serious: No
  Sender: PFIZER
  Company Number: US-PFIZER INC-PV202200128166

PATIENT
  Age: 67 Year
  Sex: Male
  Weight: 83.9 kg

DRUGS (2)
  1. LORBRENA [Suspect]
     Active Substance: LORLATINIB
     Indication: Non-small cell lung cancer
     Dosage: 100 MG, DAILY (TAKE 1 TABLET PO)
     Route: 048
     Dates: start: 20210403
  2. LORBRENA [Suspect]
     Active Substance: LORLATINIB
     Dosage: 100 MG, 1X/DAY (TAKE 1 PO QD)
     Route: 048

REACTIONS (2)
  - Blood cholesterol increased [Recovered/Resolved]
  - Peripheral swelling [Recovered/Resolved]
